FAERS Safety Report 21266293 (Version 2)
Quarter: 2022Q4

REPORT INFORMATION
  Report Type: Spontaneous
  Country: US (occurrence: US)
  Receive Date: 20220829
  Receipt Date: 20221003
  Transmission Date: 20230113
  Serious: Yes (Other)
  Sender: FDA-Public Use
  Company Number: US-PHARMING-PHAUS2022000440

PATIENT

DRUGS (2)
  1. RUCONEST [Suspect]
     Active Substance: HUMAN C1-ESTERASE INHIBITOR
     Indication: Hereditary angioedema
     Dosage: 3680 IU, PRN
     Route: 042
     Dates: start: 20181204
  2. PRENATAL VITAMINS                  /02014401/ [Concomitant]
     Indication: Product used for unknown indication

REACTIONS (6)
  - Caesarean section [Unknown]
  - Complication of delivery [Unknown]
  - Condition aggravated [Unknown]
  - Mastitis [Unknown]
  - Maternal exposure during breast feeding [Unknown]
  - Premature baby [Unknown]
